FAERS Safety Report 9181644 (Version 1)
Quarter: 2013Q1

REPORT INFORMATION
  Report Type: Spontaneous
  Country: US (occurrence: US)
  Receive Date: 20130322
  Receipt Date: 20130322
  Transmission Date: 20140127
  Serious: Yes (Hospitalization)
  Sender: FDA-Public Use
  Company Number: US-BAYER-2013-034545

PATIENT
  Age: 16 Year
  Sex: Female

DRUGS (17)
  1. YAZ [Suspect]
  2. FLEXERIL [Concomitant]
     Indication: PAIN
  3. NSAID^S [Concomitant]
     Indication: PAIN
  4. ROCEPHIN [Concomitant]
  5. MIDAZOLAM [Concomitant]
  6. MORPHINE [Concomitant]
  7. VECURONIUM [Concomitant]
  8. NOREPINEPHRINE [Concomitant]
  9. EPINEPHRINE [Concomitant]
  10. MILRINONE [Concomitant]
  11. PROTONIX [Concomitant]
  12. DIAMOX [Concomitant]
  13. LASIX [Concomitant]
  14. VANCOMYCIN [Concomitant]
  15. RIFAMPIN [Concomitant]
  16. GENTAMYCIN [Concomitant]
  17. CLINDAMYCIN [Concomitant]

REACTIONS (4)
  - Vena cava thrombosis [Recovered/Resolved]
  - Pulmonary embolism [None]
  - Subclavian vein thrombosis [Recovered/Resolved]
  - Cholelithiasis [None]
